FAERS Safety Report 19525317 (Version 1)
Quarter: 2021Q3

REPORT INFORMATION
  Report Type: Spontaneous
  Country: FR (occurrence: FR)
  Receive Date: 20210713
  Receipt Date: 20210713
  Transmission Date: 20211014
  Serious: Yes (Other)
  Sender: FDA-Public Use
  Company Number: FR-SA-2021SA223487

PATIENT
  Age: 57 Year
  Sex: Female
  Weight: 68 kg

DRUGS (3)
  1. CLOFARABINE. [Suspect]
     Active Substance: CLOFARABINE
     Indication: ACUTE MYELOID LEUKAEMIA
     Dosage: 40 MG / M2 D1 TO D5
     Route: 041
     Dates: start: 20210610, end: 20210614
  2. PARACETAMOL [Suspect]
     Active Substance: ACETAMINOPHEN
     Indication: PAIN
     Dosage: DRUG_INTERVAL_DOSAGE_UNIT_NUMBER : 1 DRUG_INTERVAL_DOSAGE_DEFINITION : {ASNECESSARY}
     Route: 048
     Dates: start: 20210607, end: 20210615
  3. CYTARABINE ACCORD [Concomitant]
     Active Substance: CYTARABINE
     Route: 065

REACTIONS (1)
  - Mixed liver injury [Recovered/Resolved]

NARRATIVE: CASE EVENT DATE: 20210611
